FAERS Safety Report 4799689-7 (Version None)
Quarter: 2005Q4

REPORT INFORMATION
  Report Type: 
  Country: None (occurrence: None)
  Receive Date: 20051013
  Receipt Date: 20050927
  Transmission Date: 20060501
  Serious: Yes (Hospitalization)
  Sender: FDA-Public Use
  Company Number: 2005129714

PATIENT
  Age: 84 Year
  Sex: Female

DRUGS (7)
  1. ALDACTONE [Suspect]
     Indication: ILL-DEFINED DISORDER
     Dosage: 25 MG (DAILY), ORAL
     Route: 048
     Dates: start: 20050601, end: 20050802
  2. FUROSEMIDE [Concomitant]
     Indication: ILL-DEFINED DISORDER
     Dosage: 20 MG (DAILY), ORAL
     Route: 048
     Dates: start: 20050601, end: 20050802
  3. PLAVIX [Suspect]
     Indication: ILL-DEFINED DISORDER
     Dosage: 75 MG (DAILY), ORAL
     Route: 048
     Dates: start: 20050601, end: 20050802
  4. KARDEGIC (ACETYLSALICYLATE LYSINE) [Concomitant]
  5. BISOPROLOL FUMARATE [Concomitant]
  6. NEXIUM [Concomitant]
  7. KALEORID (POTASIUM CHLORIDE) [Concomitant]

REACTIONS (11)
  - BICYTOPENIA [None]
  - CITROBACTER INFECTION [None]
  - DIARRHOEA [None]
  - FEBRILE NEUTROPENIA [None]
  - GENERAL PHYSICAL HEALTH DETERIORATION [None]
  - HAEMOGLOBIN DECREASED [None]
  - NAUSEA [None]
  - STAPHYLOCOCCAL SEPSIS [None]
  - URINARY TRACT INFECTION [None]
  - VOMITING [None]
  - WHITE BLOOD CELL COUNT DECREASED [None]
